FAERS Safety Report 8475122-9 (Version None)
Quarter: 2012Q2

REPORT INFORMATION
  Report Type: 
  Country: None (occurrence: None)
  Receive Date: 20120628
  Receipt Date: 20120619
  Transmission Date: 20120825
  Serious: Yes (Other)
  Sender: FDA-Public Use
  Company Number: CA-JNJFOC-20120609579

PATIENT
  Sex: Female
  Weight: 73.6 kg

DRUGS (9)
  1. ACETAMINOPHEN [Concomitant]
     Indication: PREMEDICATION
     Route: 048
     Dates: start: 20120619
  2. REMICADE [Suspect]
     Route: 042
     Dates: start: 20120619
  3. REMICADE [Suspect]
     Indication: CROHN'S DISEASE
     Route: 042
     Dates: start: 20110318
  4. IRON [Concomitant]
     Route: 065
  5. BENADRYL [Concomitant]
     Indication: PREMEDICATION
     Route: 048
     Dates: start: 20120619
  6. IMURAN [Concomitant]
     Route: 065
  7. MESALAMINE [Concomitant]
     Route: 065
  8. MULTI-VITAMINS [Concomitant]
     Route: 065
  9. CALCIUM CARBONATE [Concomitant]
     Route: 065

REACTIONS (4)
  - MUCOUS STOOLS [None]
  - FREQUENT BOWEL MOVEMENTS [None]
  - HAEMATOCHEZIA [None]
  - ABDOMINAL PAIN [None]
